FAERS Safety Report 5492515-2 (Version None)
Quarter: 2007Q4

REPORT INFORMATION
  Report Type: 
  Country: None (occurrence: None)
  Receive Date: 20071022
  Receipt Date: 20071010
  Transmission Date: 20080405
  Serious: Yes (Death, Hospitalization)
  Sender: FDA-Public Use
  Company Number: GB-SHR-GB-2006-012514

PATIENT
  Age: 62 Year
  Sex: Male

DRUGS (28)
  1. GADOVIST 1.0 [Suspect]
     Indication: NUCLEAR MAGNETIC RESONANCE IMAGING
     Dates: start: 20050421, end: 20050421
  2. ULTRAVIST 300 [Suspect]
     Dosage: 100 ML, 1 DOSE
     Dates: start: 20050418, end: 20050418
  3. NALOXONE [Suspect]
     Dates: start: 20050628, end: 20050628
  4. MAGNEVIST [Suspect]
     Dosage: UNK, UNK
     Route: 042
  5. MAGNEVIST [Suspect]
     Dates: start: 20050421, end: 20050421
  6. GASTROGRAFIN [Suspect]
     Dates: start: 20050618, end: 20050618
  7. GASTROGRAFIN [Suspect]
     Dates: start: 20050629, end: 20050629
  8. VISIPAQUE                               /USA/ [Suspect]
     Dates: start: 20050511, end: 20050511
  9. VISIPAQUE                               /USA/ [Suspect]
     Dosage: 100 ML, UNK
     Dates: start: 20050629, end: 20050629
  10. BUSCOPAN [Concomitant]
     Dosage: 20 MG, 1 DOSE
     Dates: start: 20050511, end: 20050511
  11. LIGNOCAINE [Concomitant]
     Dosage: 10 ML, 1 DOSE 1%
     Dates: start: 20050511, end: 20050511
  12. NICORANDIL [Concomitant]
     Dosage: 20 MG, 2X/DAY
  13. FUROSEMIDE [Concomitant]
     Dosage: 120 MG, 2X/DAY
  14. ISOSORBIDE MONONITRATE [Concomitant]
     Dosage: 60 MG, 1X/DAY
  15. AMLODIPINE [Concomitant]
     Dosage: 5 MG, 1X/DAY
  16. ^CLOPIDOGEL^ [Concomitant]
     Dosage: 75 MG, 1X/DAY
  17. ASPIRIN [Concomitant]
     Dosage: 75 MG, 1X/DAY
  18. ALFACALCIDOL [Concomitant]
     Dosage: .25 NG, EVERY OTHER DAY
  19. MEBEVERINE [Concomitant]
     Dosage: 135 MG, 4X/DAY
  20. BISACODYL [Concomitant]
     Dosage: 5 MG, ONCE/TWICE A DAY
  21. OMEPRAZOLE [Concomitant]
     Dosage: 20 MG, 1X/DAY
  22. CALCIUM CARBONATE [Concomitant]
     Dosage: 2 TAB(S), 1X/DAY
  23. SIMVASTATIN [Concomitant]
     Dosage: 40 MG, 1X/DAY
  24. QUININE SULFATE [Concomitant]
  25. FYBOGEL [Concomitant]
     Dosage: 1 SACHET, 1X/DAY
  26. BECLOMETHASONE DIPROPIONATE [Concomitant]
     Dosage: 200 NG, 2X/DAY
     Route: 055
  27. GLYCEROLTRINITRAT [Concomitant]
     Dosage: UNK, UNK SPRAY
  28. INSULIN [Concomitant]

REACTIONS (5)
  - DIABETES MELLITUS INADEQUATE CONTROL [None]
  - MULTI-ORGAN FAILURE [None]
  - MYOCARDIAL ISCHAEMIA [None]
  - NEPHROPATHY [None]
  - SLEEP DISORDER [None]
